FAERS Safety Report 5636050-7 (Version None)
Quarter: 2008Q1

REPORT INFORMATION
  Report Type: 
  Country: None (occurrence: None)
  Receive Date: 20080219
  Receipt Date: 20080206
  Transmission Date: 20080703
  Serious: Yes (Death, Hospitalization)
  Sender: FDA-Public Use
  Company Number: 8029706

PATIENT
  Age: 79 Year
  Sex: Female
  Weight: 67 kg

DRUGS (9)
  1. LEVETIRACETAM [Suspect]
     Dosage: 500 MG ONCE PO
     Route: 048
     Dates: start: 20071128, end: 20071128
  2. FENITOINA /00017401/ [Suspect]
     Dosage: 300 MG /D PO
     Route: 048
     Dates: start: 20071102, end: 20071124
  3. ATOR [Concomitant]
  4. FAMODIN [Concomitant]
  5. PLAVIX [Concomitant]
  6. FLUID-ELECTROLYTE THERAPY [Concomitant]
  7. ALBUMIN (HUMAN) [Concomitant]
  8. ANTIHYPERTENSIVES [Concomitant]
  9. ANTIBIOTIC [Concomitant]

REACTIONS (8)
  - CARDIAC ARREST [None]
  - DRUG LEVEL INCREASED [None]
  - GENERAL PHYSICAL HEALTH DETERIORATION [None]
  - HALLUCINATION [None]
  - PNEUMONIA [None]
  - SPEECH DISORDER [None]
  - STEVENS-JOHNSON SYNDROME [None]
  - STUPOR [None]
